FAERS Safety Report 15566668 (Version 1)
Quarter: 2018Q4

REPORT INFORMATION
  Report Type: Spontaneous
  Country: FR (occurrence: FR)
  Receive Date: 20181030
  Receipt Date: 20181030
  Transmission Date: 20190205
  Serious: Yes (Hospitalization)
  Sender: FDA-Public Use
  Company Number: FR-TEVA-2018-FR-969182

PATIENT
  Age: 69 Year
  Sex: Female
  Weight: 97 kg

DRUGS (7)
  1. TENOFOVIR DISOPROXIL [Suspect]
     Active Substance: TENOFOVIR DISOPROXIL
     Indication: CHRONIC HEPATITIS B
     Dosage: 245 MILLIGRAM DAILY;
     Route: 048
     Dates: start: 20180906, end: 20180929
  2. UVEDOSE 100 000 UI, SOLUTION BUVABLE EN AMPOULE [Concomitant]
     Active Substance: CHOLECALCIFEROL
     Route: 065
  3. SPECIAFOLDINE 5 MG, COMPRIM? [Concomitant]
     Active Substance: FOLIC ACID
     Route: 065
  4. LACTULOSE. [Concomitant]
     Active Substance: LACTULOSE
     Route: 065
  5. BISOPROLOL (FUMARATE ACIDE DE) [Concomitant]
     Active Substance: BISOPROLOL FUMARATE
     Route: 065
  6. VITAMINE B12 [Concomitant]
     Active Substance: CYANOCOBALAMIN
     Route: 065
  7. CHOLURSO 500 MG, COMPRIM? PELLICUL? [Concomitant]
     Route: 065

REACTIONS (3)
  - Jaundice cholestatic [Recovered/Resolved]
  - Hypokalaemia [Recovered/Resolved]
  - Acute kidney injury [Recovered/Resolved]

NARRATIVE: CASE EVENT DATE: 20180928
